FAERS Safety Report 7700896-1 (Version None)
Quarter: 2011Q3

REPORT INFORMATION
  Report Type: 
  Country: None (occurrence: None)
  Receive Date: 20110822
  Receipt Date: 20110815
  Transmission Date: 20111222
  Serious: Yes (Other)
  Sender: FDA-Public Use
  Company Number: PHHY2011US48546

PATIENT
  Sex: Female
  Weight: 86.168 kg

DRUGS (5)
  1. FANAPT [Suspect]
     Dosage: 8 MG, BID
  2. CYMBALTA [Concomitant]
     Indication: BIPOLAR DISORDER
     Dosage: 60 G- 30 G
     Route: 048
     Dates: start: 20090101
  3. LITHIUM CARBONATE [Suspect]
     Dosage: 450 MG, UNK
     Route: 048
     Dates: end: 20110428
  4. DYAZIDE [Concomitant]
     Indication: MENIERE'S DISEASE
     Dosage: 25 G, UNK
     Route: 048
  5. LAMICTAL [Concomitant]
     Indication: BIPOLAR DISORDER
     Dosage: 300 G, UNK
     Route: 048
     Dates: start: 20090101

REACTIONS (2)
  - OEDEMA PERIPHERAL [None]
  - DYSPNOEA [None]
